FAERS Safety Report 7648834-4 (Version None)
Quarter: 2011Q3

REPORT INFORMATION
  Report Type: 
  Country: None (occurrence: None)
  Receive Date: 20110801
  Receipt Date: 20110718
  Transmission Date: 20111222
  Serious: Yes (Other)
  Sender: FDA-Public Use
  Company Number: PHHY2011GB64200

PATIENT
  Age: 29 Year
  Sex: Female
  Weight: 63 kg

DRUGS (13)
  1. MAGNESIUM SULFATE [Concomitant]
     Dosage: UNK
  2. PHOSPHATE [Concomitant]
     Dosage: 100 MMOL/L, UNK
  3. ONDANSETRON [Concomitant]
     Dosage: UNK UKN, UNK
  4. BUPIVACAINE HCL [Concomitant]
     Dosage: 10 MG, UNK
  5. FENTANYL [Concomitant]
     Dosage: UNK
  6. CYCLIZINE [Concomitant]
     Dosage: UNK UKN, UNK
  7. MAGNESIUM SULFATE [Concomitant]
     Dosage: 4 G, UNK
  8. PHENYLEPHRINE HCL [Concomitant]
  9. HYDRALAZINE HCL [Suspect]
     Dosage: UNK UKN, UNK
  10. SODIUM LACTATE IN PLASTIC CONTAINER [Concomitant]
     Dosage: UNK
     Route: 042
  11. METOCLOPRAMIDE [Concomitant]
     Dosage: UNK UKN, UNK
  12. DEXTROSE [Concomitant]
     Dosage: UNK
  13. SODIUM BICARBONATE [Concomitant]

REACTIONS (2)
  - MATERNAL EXPOSURE DURING PREGNANCY [None]
  - PREMATURE LABOUR [None]
